FAERS Safety Report 26052747 (Version 1)
Quarter: 2025Q4

REPORT INFORMATION
  Report Type: Report from Study
  Country: US (occurrence: US)
  Receive Date: 20251117
  Receipt Date: 20251117
  Transmission Date: 20260117
  Serious: Yes (Other)
  Sender: MYLAN
  Company Number: US-MYLANLABS-2025M1096161

PATIENT
  Sex: Female

DRUGS (2)
  1. AMNESTEEM [Suspect]
     Active Substance: ISOTRETINOIN
     Indication: Product used for unknown indication
     Dosage: UNK
  2. CLARAVIS [Concomitant]
     Active Substance: ISOTRETINOIN
     Dosage: UNK

REACTIONS (2)
  - Condition aggravated [Unknown]
  - Emotional disorder [Unknown]
